FAERS Safety Report 9362228 (Version 1)
Quarter: 2013Q2

REPORT INFORMATION
  Report Type: Spontaneous
  Country: US (occurrence: US)
  Receive Date: 20130622
  Receipt Date: 20130622
  Transmission Date: 20140414
  Serious: Yes (Hospitalization, Other)
  Sender: FDA-Public Use
  Company Number: US-TEVA-413664USA

PATIENT
  Age: 85 Year
  Sex: Female

DRUGS (4)
  1. WARFARIN [Suspect]
     Indication: ATRIAL FIBRILLATION
     Route: 065
  2. PROFILNINE SD [Suspect]
     Indication: CEREBRAL HAEMORRHAGE
     Dosage: 25 UNITS/KG AT 10 ML/MIN
     Route: 042
  3. VITAMIN K [Concomitant]
     Indication: CEREBRAL HAEMORRHAGE
     Dosage: OVER 15 MIN
     Route: 042
  4. ASPIRIN [Concomitant]
     Dosage: 81MG DAILY
     Route: 065

REACTIONS (3)
  - Cerebral haemorrhage [Recovering/Resolving]
  - Acute myocardial infarction [Recovering/Resolving]
  - Thrombosis in device [Recovering/Resolving]
